FAERS Safety Report 10764406 (Version 2)
Quarter: 2015Q1

REPORT INFORMATION
  Report Type: Spontaneous
  Country: US (occurrence: US)
  Receive Date: 20150205
  Receipt Date: 20150225
  Transmission Date: 20150721
  Serious: No
  Sender: FDA-Public Use
  Company Number: US-ASTRAZENECA-2015SE08608

PATIENT
  Age: 848 Month
  Sex: Female
  Weight: 81.6 kg

DRUGS (5)
  1. LISINOPRIL. [Concomitant]
     Active Substance: LISINOPRIL
     Indication: BLOOD PRESSURE
     Route: 048
  2. SYNTHROID [Concomitant]
     Active Substance: LEVOTHYROXINE SODIUM
     Indication: THYROID DISORDER
  3. OCCUVITE [Concomitant]
     Indication: EYE DISORDER
     Dosage: DAILY
  4. DIGAMOX [Concomitant]
  5. SYMBICORT [Suspect]
     Active Substance: BUDESONIDE\FORMOTEROL FUMARATE DIHYDRATE
     Indication: ASTHMA
     Dosage: 160/4.5, 2 PUFFS BID
     Route: 055
     Dates: start: 201412, end: 201501

REACTIONS (10)
  - Hypersensitivity [Unknown]
  - Asthenia [Unknown]
  - Lethargy [Unknown]
  - Pain [Unknown]
  - Productive cough [Recovering/Resolving]
  - Vomiting [Unknown]
  - Upper-airway cough syndrome [Unknown]
  - Influenza [Unknown]
  - Vision blurred [Recovering/Resolving]
  - Cough [Recovering/Resolving]

NARRATIVE: CASE EVENT DATE: 201412
